FAERS Safety Report 8887945 (Version 1)
Quarter: 2012Q4

REPORT INFORMATION
  Report Type: Spontaneous
  Country: GB (occurrence: None)
  Receive Date: 20121031
  Receipt Date: 20121031
  Transmission Date: 20130627
  Serious: Yes (Hospitalization)
  Sender: FDA-Public Use
  Company Number: DIAZ20120022

PATIENT
  Age: 43 Year
  Sex: Female

DRUGS (4)
  1. DIAZEPAM [Suspect]
     Indication: MULTIPLE DRUG OVERDOSE INTENTIONAL
     Route: 048
  2. DIAZEPAM [Suspect]
     Indication: MULTIPLE DRUG OVERDOSE INTENTIONAL
     Route: 048
  3. GABAPENTIN [Suspect]
     Indication: MULTIPLE DRUG OVERDOSE INTENTIONAL
     Route: 048
  4. CITALOPRAM [Suspect]
     Indication: MULTIPLE DRUG OVERDOSE INTENTIONAL
     Route: 048

REACTIONS (11)
  - Overdose [None]
  - Hypotension [None]
  - Bradycardia [None]
  - Drug resistance [None]
  - Pulmonary oedema [None]
  - Hypoxia [None]
  - Left ventricular dysfunction [None]
  - Depressed level of consciousness [None]
  - Renal impairment [None]
  - Atrioventricular block complete [None]
  - Ejection fraction decreased [None]
